FAERS Safety Report 7282183-1 (Version None)
Quarter: 2011Q1

REPORT INFORMATION
  Report Type: 
  Country: None (occurrence: None)
  Receive Date: 20110209
  Receipt Date: 20110127
  Transmission Date: 20110831
  Serious: Yes (Hospitalization)
  Sender: FDA-Public Use
  Company Number: US-BIOGENIDEC-2010BI027944

PATIENT
  Age: 56 Year
  Sex: Female

DRUGS (3)
  1. TYSABRI [Suspect]
     Route: 042
     Dates: start: 20100501, end: 20100701
  2. TYSABRI [Suspect]
     Route: 042
     Dates: start: 20100901, end: 20100901
  3. TYSABRI [Suspect]
     Indication: MULTIPLE SCLEROSIS
     Route: 042
     Dates: start: 20070205, end: 20100101

REACTIONS (22)
  - HYPOTENSION [None]
  - ANAEMIA [None]
  - BLOOD PRESSURE INCREASED [None]
  - PYREXIA [None]
  - DYSPNOEA [None]
  - PAIN [None]
  - HEADACHE [None]
  - FACIAL NERVE DISORDER [None]
  - IMMUNOSUPPRESSION [None]
  - HERPES ZOSTER [None]
  - NYSTAGMUS [None]
  - CONFUSIONAL STATE [None]
  - SEPSIS [None]
  - SENSORY DISTURBANCE [None]
  - PRURITUS [None]
  - STAPHYLOCOCCAL INFECTION [None]
  - BLOOD POTASSIUM DECREASED [None]
  - ATELECTASIS [None]
  - URINARY TRACT INFECTION [None]
  - CHILLS [None]
  - ARTHROPOD BITE [None]
  - EXCESSIVE GRANULATION TISSUE [None]
